FAERS Safety Report 7734085-1 (Version None)
Quarter: 2011Q3

REPORT INFORMATION
  Report Type: 
  Country: None (occurrence: None)
  Receive Date: 20110907
  Receipt Date: 20110826
  Transmission Date: 20111222
  Serious: Yes (Death)
  Sender: FDA-Public Use
  Company Number: CA-ROCHE-765374

PATIENT
  Sex: Female
  Weight: 95 kg

DRUGS (18)
  1. TOCILIZUMAB [Suspect]
     Indication: RHEUMATOID ARTHRITIS
     Dosage: FORM : LIQUID, LAST DOSE PRIOR TO SAE : 03 MAR 2011,FREQ:Q4S,PERMANENTLY DISCONTINUED:11MAR2011
     Route: 042
     Dates: start: 20091209, end: 20110311
  2. HYDROCHLOROTHIAZIDE [Concomitant]
     Dates: start: 20091023
  3. FOLIC ACID [Concomitant]
     Dosage: DOSE: 5 MG QS.
     Dates: start: 20091211
  4. RAMIPRIL [Concomitant]
     Dates: start: 20100315, end: 20100315
  5. NAPROXEN [Concomitant]
     Dosage: DRUG NAME REPORTED AS NAPROXYEN.
     Route: 065
     Dates: start: 20081022
  6. LIPITOR [Concomitant]
     Dates: start: 20100315
  7. PREDNISONE [Concomitant]
     Dates: start: 20101118
  8. LEVOTHYROXINE SODIUM [Concomitant]
     Dates: start: 19990101
  9. CALCIUM CARBONATE [Concomitant]
     Dates: start: 20090601
  10. RAMIPRIL [Concomitant]
     Dates: start: 20100316
  11. PLACEBO [Suspect]
     Indication: RHEUMATOID ARTHRITIS
     Dosage: FREQUENCY: QS,PERMANENTLY DISCONTINUED:11MAR2011
     Route: 048
     Dates: start: 20091209, end: 20110311
  12. ZOPICLONE [Concomitant]
     Dates: start: 20091117
  13. VITAMIN D [Concomitant]
     Dates: start: 20090601
  14. METOPROLOL [Concomitant]
     Dates: start: 20100315
  15. PREDNISONE [Concomitant]
     Dates: start: 20091110
  16. ASPIRIN [Concomitant]
     Dates: start: 20100315
  17. NITROGLYCERIN SPRAY [Concomitant]
     Dates: start: 20101108
  18. PLAVIX [Concomitant]
     Dates: start: 20100315

REACTIONS (9)
  - EYE SWELLING [None]
  - LYMPHADENOPATHY [None]
  - INTRACARDIAC THROMBUS [None]
  - METASTATIC NEOPLASM [None]
  - METASTASES TO EYE [None]
  - MALIGNANT PLEURAL EFFUSION [None]
  - METASTASES TO CENTRAL NERVOUS SYSTEM [None]
  - DIPLOPIA [None]
  - METASTASES TO LIVER [None]
